FAERS Safety Report 16183999 (Version 11)
Quarter: 2019Q4

REPORT INFORMATION
  Report Type: Spontaneous
  Country: PL (occurrence: PL)
  Receive Date: 20190411
  Receipt Date: 20191204
  Transmission Date: 20200122
  Serious: Yes (Death, Hospitalization, Disabling, Other)
  Sender: FDA-Public Use
  Company Number: PL-ELI_LILLY_AND_COMPANY-PL201904004998

PATIENT
  Age: 64 Year
  Sex: Female

DRUGS (23)
  1. FUROSEMIDE. [Suspect]
     Active Substance: FUROSEMIDE
     Indication: SWELLING
  2. FUROSEMIDE. [Concomitant]
     Active Substance: FUROSEMIDE
     Indication: CERVIX CARCINOMA
     Dosage: 60 MG, UNKNOWN
     Route: 065
  3. MORPHINE [Interacting]
     Active Substance: MORPHINE
     Indication: PAIN
  4. OLANZAPINE. [Interacting]
     Active Substance: OLANZAPINE
     Indication: NAUSEA
  5. DALTEPARIN SODIUM [Concomitant]
     Active Substance: DALTEPARIN SODIUM
  6. OLANZAPINE. [Interacting]
     Active Substance: OLANZAPINE
     Indication: SLEEP DISORDER
  7. OLANZAPINE. [Interacting]
     Active Substance: OLANZAPINE
     Indication: PSYCHOTIC DISORDER
  8. AMITRIPTYLINE [Interacting]
     Active Substance: AMITRIPTYLINE
     Indication: NEURALGIA
  9. OLANZAPINE. [Suspect]
     Active Substance: OLANZAPINE
     Indication: INSOMNIA
     Dosage: 10 MG, EACH EVENING
     Route: 065
  10. MORPHINE [Interacting]
     Active Substance: MORPHINE
     Indication: NEURALGIA
  11. AMITRIPTYLINE [Interacting]
     Active Substance: AMITRIPTYLINE
     Indication: ANALGESIC THERAPY
     Dosage: 150 MG, DAILY
     Route: 065
  12. AMITRIPTYLINE [Interacting]
     Active Substance: AMITRIPTYLINE
     Indication: PAIN
  13. AMITRIPTYLINE [Interacting]
     Active Substance: AMITRIPTYLINE
     Indication: PSYCHOTIC DISORDER
  14. FLUCONAZOLE. [Interacting]
     Active Substance: FLUCONAZOLE
     Indication: ORAL FUNGAL INFECTION
     Dosage: 200 MG, DAILY
     Route: 048
  15. FLUCONAZOLE. [Interacting]
     Active Substance: FLUCONAZOLE
     Indication: ORAL FUNGAL INFECTION
  16. MORPHINE [Interacting]
     Active Substance: MORPHINE
     Indication: ANALGESIC THERAPY
     Dosage: 240 MG, DAILY
     Route: 048
  17. MORPHINE [Interacting]
     Active Substance: MORPHINE
     Indication: CERVIX CARCINOMA
  18. AMITRIPTYLINE [Interacting]
     Active Substance: AMITRIPTYLINE
     Indication: CERVIX CARCINOMA
  19. FLUCONAZOLE. [Interacting]
     Active Substance: FLUCONAZOLE
     Indication: ORAL DISORDER
  20. FUROSEMIDE. [Suspect]
     Active Substance: FUROSEMIDE
     Indication: CERVIX CARCINOMA
     Dosage: 60 MG, DAILY (PROPHYLACTIC DOSE)
     Route: 065
  21. HEPARIN [Suspect]
     Active Substance: HEPARIN SODIUM
     Indication: CERVIX CARCINOMA
     Dosage: UNK UNK, UNKNOWN
     Route: 065
  22. POTASSIUM CHLORIDE. [Suspect]
     Active Substance: POTASSIUM CHLORIDE
     Indication: CERVIX CARCINOMA
     Dosage: UNK, UNKNOWN
     Route: 065
  23. LOW MOLECULAR WEIGHT HEPARIN [Concomitant]
     Active Substance: UNSPECIFIED INGREDIENT
     Indication: PRODUCT USED FOR UNKNOWN INDICATION
     Dosage: UNK UNK, UNKNOWN (A PROPHYLACTIC DOSE)
     Route: 065

REACTIONS (13)
  - Drug interaction [Fatal]
  - Nausea [Recovered/Resolved]
  - Pulmonary embolism [Fatal]
  - Cardiac arrest [Fatal]
  - Confusional state [Fatal]
  - Insomnia [Recovering/Resolving]
  - Disturbance in attention [Fatal]
  - Embolism venous [Fatal]
  - Cyanosis [Fatal]
  - Somnolence [Fatal]
  - Off label use [Unknown]
  - Pulmonary artery thrombosis [Fatal]
  - Cardio-respiratory arrest [Fatal]
